FAERS Safety Report 9704420 (Version 3)
Quarter: 2013Q4

REPORT INFORMATION
  Report Type: Spontaneous
  Country: US (occurrence: US)
  Receive Date: 20131122
  Receipt Date: 20131126
  Transmission Date: 20140711
  Serious: Yes (Other)
  Sender: FDA-Public Use
  Company Number: US-SANOFI-AVENTIS-2013SA088925

PATIENT
  Age: 65 Year
  Sex: Female

DRUGS (8)
  1. LANTUS SOLOSTAR [Suspect]
     Indication: TYPE 2 DIABETES MELLITUS
     Dosage: DOSE:16 UNIT(S)
     Route: 051
  2. LANTUS SOLOSTAR [Suspect]
     Indication: TYPE 2 DIABETES MELLITUS
     Dosage: DOSE - 2 - 4 UNITS WITH MEALS
     Route: 051
     Dates: start: 2013
  3. LANTUS SOLOSTAR [Suspect]
     Indication: TYPE 2 DIABETES MELLITUS
     Dosage: DOSE:12 UNIT(S)
     Route: 051
  4. APIDRA SOLOSTAR [Suspect]
     Route: 065
  5. SOLOSTAR [Suspect]
  6. SOLOSTAR [Suspect]
     Indication: TYPE 2 DIABETES MELLITUS
     Dates: start: 2013
  7. HUMALOG [Suspect]
     Route: 065
  8. GLUCOPHAGE [Concomitant]

REACTIONS (5)
  - Diabetic retinopathy [Unknown]
  - Emphysema [Unknown]
  - Blindness [Unknown]
  - Hypoglycaemia [Unknown]
  - Blood glucose increased [Unknown]
